FAERS Safety Report 22366147 (Version 1)
Quarter: 2023Q2

REPORT INFORMATION
  Report Type: Spontaneous
  Country: US (occurrence: None)
  Receive Date: 20230524
  Receipt Date: 20230524
  Transmission Date: 20230722
  Serious: Yes (Hospitalization)
  Sender: FDA-Public Use
  Company Number: None

PATIENT
  Sex: Female

DRUGS (20)
  1. CAPECITABINE [Suspect]
     Active Substance: CAPECITABINE
     Indication: Breast cancer female
     Dosage: 3T BID PO?
     Route: 048
  2. MAGNESIUM [Concomitant]
  3. POTASSIUM [Concomitant]
  4. VITAMIN B12 [Concomitant]
     Active Substance: CYANOCOBALAMIN
  5. METOPROLOL [Concomitant]
     Active Substance: METOPROLOL
  6. LYRICA [Concomitant]
  7. XANAX [Concomitant]
  8. TYLENOL [Concomitant]
     Active Substance: ACETAMINOPHEN
  9. ALPRAZOLAM [Concomitant]
  10. B COMPLEX-C [Concomitant]
  11. FOLIC ACID [Concomitant]
  12. HYDROCORTISONE [Concomitant]
  13. MAGNESIUM OXIDE [Concomitant]
  14. METOPROLOL [Concomitant]
     Active Substance: METOPROLOL
  15. KLOR-CON [Concomitant]
  16. SILVER SULFADIAZINE [Concomitant]
  17. FUROSEMIDE [Concomitant]
  18. PERCOCET [Concomitant]
  19. VITAMIN D3 [Concomitant]
     Active Substance: CHOLECALCIFEROL
  20. DOXYCYCLINE [Concomitant]

REACTIONS (3)
  - Tooth infection [None]
  - Therapy interrupted [None]
  - Tooth loss [None]
